FAERS Safety Report 11592250 (Version 1)
Quarter: 2015Q4

REPORT INFORMATION
  Report Type: Spontaneous
  Country: IT (occurrence: IT)
  Receive Date: 20151005
  Receipt Date: 20151005
  Transmission Date: 20160304
  Serious: Yes (Other)
  Sender: FDA-Public Use
  Company Number: IT-ACCORD-034132

PATIENT
  Age: 84 Year
  Sex: Female

DRUGS (1)
  1. PACLITAXEL/PACLITAXEL LIPOSOME [Suspect]
     Active Substance: PACLITAXEL
     Indication: BREAST ANGIOSARCOMA

REACTIONS (7)
  - Malignant neoplasm progression [None]
  - Iron deficiency anaemia [Unknown]
  - Fatigue [Unknown]
  - Neutropenia [Unknown]
  - No therapeutic response [Unknown]
  - Breast angiosarcoma [None]
  - Alopecia [Unknown]
